FAERS Safety Report 8785146 (Version 1)
Quarter: 2012Q4

REPORT INFORMATION
  Report Type: 
  Country: US (occurrence: US)
  Receive Date: 20120914
  Receipt Date: 20120914
  Transmission Date: 20130627
  Serious: Yes (Other)
  Sender: FDA-Public Use
  Company Number: US-VERTEX PHARMACEUTICAL INC.-2012-020799

PATIENT
  Age: 54 None
  Sex: Female
  Weight: 91 kg

DRUGS (5)
  1. INCIVEK [Suspect]
     Indication: HEPATITIS C
     Dosage: 750 mg, tid
     Route: 048
     Dates: start: 20120803, end: 20120904
  2. RIBAVIRIN [Concomitant]
     Indication: HEPATITIS C
     Dosage: 1200 mg, qd
     Dates: start: 20120803
  3. RIBAVIRIN [Concomitant]
     Dosage: 1000 mg, qd
  4. RIBAVIRIN [Concomitant]
     Dosage: 800 mg, qd
     Dates: end: 20120904
  5. PEGASYS [Concomitant]
     Indication: HEPATITIS C
     Dosage: 180 ?g, qd
     Route: 058
     Dates: start: 20120803, end: 20120904

REACTIONS (4)
  - Suicidal ideation [Recovered/Resolved]
  - Depression [Unknown]
  - Weight increased [Unknown]
  - Anaemia [Not Recovered/Not Resolved]
